FAERS Safety Report 7319167-0 (Version None)
Quarter: 2011Q1

REPORT INFORMATION
  Report Type: 
  Country: None (occurrence: None)
  Receive Date: 20110228
  Receipt Date: 20110217
  Transmission Date: 20110831
  Serious: Yes (Hospitalization)
  Sender: FDA-Public Use
  Company Number: PHHY2011ES12928

PATIENT
  Age: 57 Year
  Sex: Male

DRUGS (3)
  1. VOLTAREN [Suspect]
     Indication: PAIN
     Dosage: 50 MG
     Route: 048
     Dates: start: 20080928, end: 20081202
  2. ALLOPURINOL [Concomitant]
  3. SIMVASTATIN [Concomitant]

REACTIONS (4)
  - DIVERTICULUM INTESTINAL [None]
  - GASTROINTESTINAL HAEMORRHAGE [None]
  - BLOOD PRESSURE INCREASED [None]
  - COLONIC POLYP [None]
